FAERS Safety Report 9808549 (Version 2)
Quarter: 2014Q1

REPORT INFORMATION
  Report Type: Spontaneous
  Country: US (occurrence: US)
  Receive Date: 20140110
  Receipt Date: 20140130
  Transmission Date: 20141002
  Serious: No
  Sender: FDA-Public Use
  Company Number: US-TEVA-455340USA

PATIENT
  Sex: Female
  Weight: 79 kg

DRUGS (6)
  1. NUVIGIL [Suspect]
     Indication: ASTHENIA
     Dosage: 100 MILLIGRAM DAILY;
     Dates: start: 201312
  2. NUVIGIL [Suspect]
     Indication: SOMNOLENCE
  3. NUVIGIL [Suspect]
     Indication: FATIGUE
  4. NUVIGIL [Suspect]
     Indication: FATIGUE
  5. PROVIGIL [Suspect]
     Dosage: 100 MILLIGRAM DAILY;
     Dates: start: 20140104
  6. OTHER MEDICATIONS [Concomitant]

REACTIONS (3)
  - Nausea [Not Recovered/Not Resolved]
  - Fatigue [Not Recovered/Not Resolved]
  - Drug ineffective [Unknown]
